FAERS Safety Report 11303662 (Version 2)
Quarter: 2015Q3

REPORT INFORMATION
  Report Type: Spontaneous
  Country: US (occurrence: US)
  Receive Date: 20150723
  Receipt Date: 20150807
  Transmission Date: 20151125
  Serious: No
  Sender: FDA-Public Use
  Company Number: US-JNJFOC-20150610946

PATIENT
  Sex: Female
  Weight: 84.82 kg

DRUGS (9)
  1. LISINOPRIL. [Concomitant]
     Active Substance: LISINOPRIL
     Indication: HYPERTENSION
     Route: 065
  2. ZYRTEC [Suspect]
     Active Substance: CETIRIZINE HYDROCHLORIDE
     Indication: SEASONAL ALLERGY
     Route: 048
     Dates: end: 20150612
  3. OMEPRAZOLE. [Concomitant]
     Active Substance: OMEPRAZOLE
     Indication: GASTROOESOPHAGEAL REFLUX DISEASE
     Route: 065
  4. CENTRUM MULTIVITAMINS [Concomitant]
     Active Substance: VITAMINS
     Dosage: DAILY
     Route: 065
  5. ZYRTEC [Suspect]
     Active Substance: CETIRIZINE HYDROCHLORIDE
     Route: 048
  6. SULINDAC. [Concomitant]
     Active Substance: SULINDAC
     Indication: ARTHRALGIA
     Route: 065
  7. ZETIA [Concomitant]
     Active Substance: EZETIMIBE
     Indication: BLOOD CHOLESTEROL
     Route: 065
     Dates: end: 20150608
  8. ETODOLAC. [Concomitant]
     Active Substance: ETODOLAC
     Indication: ARTHRALGIA
     Route: 065
     Dates: end: 20150608
  9. LEVOTHYROXINE. [Concomitant]
     Active Substance: LEVOTHYROXINE
     Indication: HYPOTHYROIDISM
     Route: 065

REACTIONS (2)
  - Fluid retention [Recovered/Resolved]
  - Oedema peripheral [Recovered/Resolved]
